FAERS Safety Report 6398864-8 (Version None)
Quarter: 2009Q4

REPORT INFORMATION
  Report Type: 
  Country: None (occurrence: None)
  Receive Date: 20091007
  Receipt Date: 20090921
  Transmission Date: 20100525
  Serious: Yes (Hospitalization)
  Sender: FDA-Public Use
  Company Number: DSA_41677_2009

PATIENT
  Age: 37 Year
  Sex: Female

DRUGS (2)
  1. CITALOPRAM HYDROBROMIDE [Suspect]
     Dosage: (NOT PRESCRIBED AMOUNT)
  2. ALCOHOL (ALCOHOL) [Suspect]
     Dosage: (AMOUNT UNKNOWN ORAL)
     Route: 048

REACTIONS (9)
  - ARRHYTHMIA [None]
  - BLOOD GLUCOSE FLUCTUATION [None]
  - DEPRESSED LEVEL OF CONSCIOUSNESS [None]
  - GRAND MAL CONVULSION [None]
  - HYPOGLYCAEMIA [None]
  - OVERDOSE [None]
  - RESPIRATORY ACIDOSIS [None]
  - RESPIRATORY RATE INCREASED [None]
  - SINUS TACHYCARDIA [None]
